FAERS Safety Report 24272290 (Version 2)
Quarter: 2025Q1

REPORT INFORMATION
  Report Type: Report from Study
  Country: US (occurrence: US)
  Receive Date: 20240902
  Receipt Date: 20250115
  Transmission Date: 20250409
  Serious: Yes (Other)
  Sender: ABBVIE
  Company Number: US-ABBVIE-5901047

PATIENT
  Age: 42 Year
  Sex: Male

DRUGS (1)
  1. SKYRIZI [Suspect]
     Active Substance: RISANKIZUMAB-RZAA
     Indication: Psoriasis
     Route: 058
     Dates: start: 20220208, end: 20240730

REACTIONS (2)
  - Aortic rupture [Unknown]
  - Stent placement [Recovered/Resolved]

NARRATIVE: CASE EVENT DATE: 20241110
